FAERS Safety Report 8560837-4 (Version None)
Quarter: 2012Q3

REPORT INFORMATION
  Report Type: 
  Country: None (occurrence: None)
  Receive Date: 20120802
  Receipt Date: 20120718
  Transmission Date: 20120928
  Serious: Yes (Hospitalization)
  Sender: FDA-Public Use
  Company Number: JP-ROCHE-713124

PATIENT
  Sex: Female
  Weight: 41 kg

DRUGS (29)
  1. ACTEMRA [Suspect]
  2. PREDNISOLONE [Suspect]
     Route: 065
     Dates: start: 20091018, end: 20100209
  3. PREDNISOLONE [Suspect]
     Route: 065
     Dates: start: 20081217, end: 20081223
  4. SERRAPEPTASE [Concomitant]
     Indication: BRONCHITIS CHRONIC
     Dosage: AS NEEDED
  5. AMBROXOL HYDROCHLORIDE [Concomitant]
     Indication: BRONCHITIS CHRONIC
     Dosage: AS NEEDED
  6. CEFCAPENE PIVOXIL HYDROCHLORIDE [Concomitant]
     Indication: OROPHARYNGEAL PAIN
     Dates: start: 20100606, end: 20100616
  7. PREDNISOLONE [Suspect]
     Route: 065
     Dates: start: 20090427, end: 20090526
  8. PREDNISOLONE [Suspect]
     Route: 065
     Dates: start: 20090610, end: 20091018
  9. ALENDRONATE SODIUM [Concomitant]
     Indication: OSTEOPOROSIS
  10. TACROLIMUS [Suspect]
     Route: 065
     Dates: start: 20090211, end: 20100701
  11. FOLIC ACID [Concomitant]
     Indication: VITAMIN SUPPLEMENTATION
     Dates: start: 20080730, end: 20081118
  12. ALENDRONATE SODIUM [Concomitant]
  13. ACTEMRA [Suspect]
     Indication: RHEUMATOID ARTHRITIS
     Dosage: RESCUE THERAPY
     Route: 065
  14. METHOTREXATE [Suspect]
     Indication: RHEUMATOID ARTHRITIS
     Route: 065
     Dates: start: 20080513, end: 20081118
  15. METHOTREXATE [Suspect]
     Route: 065
     Dates: start: 20090223, end: 20100623
  16. TACROLIMUS [Suspect]
     Indication: RHEUMATOID ARTHRITIS
     Route: 065
     Dates: start: 20070627, end: 20081125
  17. PREDNISOLONE [Suspect]
     Route: 065
     Dates: start: 20090121, end: 20090426
  18. PREDNISOLONE [Suspect]
     Route: 065
     Dates: start: 20100210, end: 20100708
  19. TEPRENONE [Concomitant]
     Indication: GASTRITIS PROPHYLAXIS
     Dates: start: 20070501, end: 20070715
  20. LOXOPROFEN SODIUM [Concomitant]
     Dosage: AS NEEDED.
  21. OCRELIZUMAB [Suspect]
     Indication: RHEUMATOID ARTHRITIS
     Dosage: PATIENT WITH DRAWN FROM STUDY ON 19 OCT 2009.
     Route: 042
     Dates: start: 20080827, end: 20090223
  22. PREDNISOLONE AND PREDNISOLONE [Suspect]
     Indication: RHEUMATOID ARTHRITIS
     Route: 065
     Dates: start: 20040603, end: 20081126
  23. PREDNISOLONE [Suspect]
     Route: 065
     Dates: start: 20081210, end: 20081216
  24. PREDNISOLONE [Suspect]
     Route: 065
  25. PREDNISOLONE [Suspect]
     Route: 065
     Dates: start: 20090527, end: 20090609
  26. PREDNISOLONE [Suspect]
     Route: 065
     Dates: start: 20081127, end: 20081209
  27. FOLIC ACID [Concomitant]
     Dates: start: 20090223, end: 20100626
  28. DICLOFENAC SODIUM [Concomitant]
     Indication: RHEUMATOID ARTHRITIS
  29. PREDNISOLONE [Suspect]
     Route: 065
     Dates: start: 20090114, end: 20090120

REACTIONS (1)
  - ORGANISING PNEUMONIA [None]
